FAERS Safety Report 23597796 (Version 1)
Quarter: 2024Q1

REPORT INFORMATION
  Report Type: Spontaneous
  Country: DE (occurrence: DE)
  Receive Date: 20240305
  Receipt Date: 20240305
  Transmission Date: 20240409
  Serious: Yes (Death, Life-Threatening, Hospitalization, Other)
  Sender: FDA-Public Use
  Company Number: DE-BAYER-2024A032736

PATIENT
  Age: 67 Year
  Sex: Male

DRUGS (6)
  1. NUBEQA [Suspect]
     Active Substance: DAROLUTAMIDE
     Indication: Prostate cancer
     Dosage: UNK
  2. DOCETAXEL [Concomitant]
     Active Substance: DOCETAXEL\DOCETAXEL ANHYDROUS
     Dosage: UNK
  3. AMITRIPTYLINE HYDROCHLORIDE [Concomitant]
     Active Substance: AMITRIPTYLINE HYDROCHLORIDE
     Dosage: UNK
  4. ELIGARD [Concomitant]
     Active Substance: LEUPROLIDE ACETATE
     Dosage: UNK
  5. TINZAPARIN [Concomitant]
     Active Substance: TINZAPARIN
     Dosage: UNK
  6. UNSPECIFIED INGREDIENT [Concomitant]
     Active Substance: UNSPECIFIED INGREDIENT
     Dosage: UNK

REACTIONS (11)
  - General physical health deterioration [Fatal]
  - Acute abdomen [None]
  - Abdominal pain [None]
  - Abdominal distension [None]
  - Mechanical ileus [None]
  - Intestinal obstruction [None]
  - Tachyarrhythmia [None]
  - Sepsis [Recovering/Resolving]
  - Atrial fibrillation [Not Recovered/Not Resolved]
  - Prostate cancer [None]
  - International normalised ratio increased [None]

NARRATIVE: CASE EVENT DATE: 20240102
